FAERS Safety Report 23566913 (Version 2)
Quarter: 2025Q1

REPORT INFORMATION
  Report Type: Spontaneous
  Country: US (occurrence: US)
  Receive Date: 20240226
  Receipt Date: 20250214
  Transmission Date: 20250409
  Serious: No
  Sender: AMNEAL
  Company Number: US-AMNEAL PHARMACEUTICALS-2023-AMRX-02879

PATIENT
  Age: 66 Year
  Sex: Female

DRUGS (6)
  1. RYTARY [Suspect]
     Active Substance: CARBIDOPA\LEVODOPA
     Indication: Parkinson^s disease
     Dosage: 2 CAPSULES (48.75-195 MG), 4 /DAY
     Route: 048
  2. RYTARY [Suspect]
     Active Substance: CARBIDOPA\LEVODOPA
     Dosage: 2 CAPSULES (48.75-195 MG), 5 /DAY
     Route: 048
  3. RYTARY [Suspect]
     Active Substance: CARBIDOPA\LEVODOPA
     Dosage: 2 CAPSULES (48.75-195 MG), 6 /DAY
     Route: 048
  4. RYTARY [Suspect]
     Active Substance: CARBIDOPA\LEVODOPA
     Dosage: 2 CAPSULES (48.75-195 MG), 4 /DAY
     Route: 048
  5. RYTARY [Suspect]
     Active Substance: CARBIDOPA\LEVODOPA
     Dosage: 48.75-195 MG, 2 CAPSULES, 6 /DAY
     Route: 048
     Dates: start: 20240304
  6. RYTARY [Suspect]
     Active Substance: CARBIDOPA\LEVODOPA
     Dosage: 48.75-195 MG, 2 CAPSULES, 6 /DAY, OCCASIONALLY TAKES AN EXTRA CAPSULE AS NEEDED.

REACTIONS (7)
  - Tremor [Recovered/Resolved]
  - Illness [Unknown]
  - Hallucination [Recovered/Resolved]
  - Tachycardia [Recovered/Resolved]
  - On and off phenomenon [Unknown]
  - Drug effect less than expected [Unknown]
  - Overdose [Unknown]

NARRATIVE: CASE EVENT DATE: 20230703
